APPROVED DRUG PRODUCT: MEPERIDINE HYDROCHLORIDE PRESERVATIVE FREE
Active Ingredient: MEPERIDINE HYDROCHLORIDE
Strength: 10MG/ML
Dosage Form/Route: INJECTABLE;INJECTION
Application: A081002 | Product #001
Applicant: WEST-WARD PHARMACEUTICALS INTERNATIONAL LTD
Approved: Jul 30, 1993 | RLD: No | RS: Yes | Type: RX